FAERS Safety Report 10171086 (Version 1)
Quarter: 2014Q2

REPORT INFORMATION
  Report Type: Spontaneous
  Country: US (occurrence: None)
  Receive Date: 20140513
  Receipt Date: 20140513
  Transmission Date: 20141212
  Serious: No
  Sender: FDA-Public Use
  Company Number: None

PATIENT
  Age: 35 Year
  Sex: Male

DRUGS (4)
  1. AVENA SATIVA [Suspect]
     Indication: NERVOUSNESS
     Route: 048
  2. AVENA SATIVA [Suspect]
     Indication: AGITATION
     Route: 048
  3. MVI [Concomitant]
  4. FISH OIL [Concomitant]

REACTIONS (3)
  - Pruritus [None]
  - Rash [None]
  - Drug hypersensitivity [None]
